FAERS Safety Report 23222566 (Version 3)
Quarter: 2023Q4

REPORT INFORMATION
  Report Type: Spontaneous
  Country: DE (occurrence: DE)
  Receive Date: 20231123
  Receipt Date: 20231219
  Transmission Date: 20240110
  Serious: No
  Sender: FDA-Public Use
  Company Number: DE-BAXTER-2023BAX036023

PATIENT
  Age: 39 Year
  Sex: Male

DRUGS (10)
  1. PROPOFOL [Suspect]
     Active Substance: PROPOFOL
     Indication: Analgesic therapy
     Route: 065
  2. PROPOFOL [Suspect]
     Active Substance: PROPOFOL
     Indication: Sedative therapy
  3. SUFENTANIL [Suspect]
     Active Substance: SUFENTANIL
     Indication: Sedation
     Route: 065
  4. SUFENTANIL [Suspect]
     Active Substance: SUFENTANIL
     Indication: Analgesic therapy
  5. LORMETAZEPAM [Suspect]
     Active Substance: LORMETAZEPAM
     Indication: Sedation
     Route: 065
  6. LORMETAZEPAM [Suspect]
     Active Substance: LORMETAZEPAM
     Indication: Analgesic therapy
  7. OXYGEN [Concomitant]
     Active Substance: OXYGEN
     Indication: Oxygen therapy
     Dosage: INITIALLY 4 L/MIN O2 VIA NASAL CANNULA, PERIPHERAL OXYGEN SATURATION 94% WITH THIS
     Route: 045
  8. OXYGEN [Concomitant]
     Active Substance: OXYGEN
     Dosage: 12 L/MIN O2 VIA AN INSUFFLATION MASK
     Route: 045
  9. DEXAMETHASONE [Concomitant]
     Active Substance: DEXAMETHASONE
     Dosage: 6 MG/DAY FOR A TOTAL OF 10 DAYS ACCORDING TO THE GUIDELINES
     Route: 042
  10. MORPHINE [Concomitant]
     Active Substance: MORPHINE
     Indication: Supportive care
     Dosage: PERFORMED TO POSITIVELY INFLUENCE DYSPNEA AND ANXIETY
     Route: 040

REACTIONS (1)
  - Blood triglycerides increased [Unknown]
